FAERS Safety Report 18940646 (Version 1)
Quarter: 2021Q1

REPORT INFORMATION
  Report Type: Spontaneous
  Country: IE (occurrence: IE)
  Receive Date: 20210225
  Receipt Date: 20210225
  Transmission Date: 20210420
  Serious: Yes (Hospitalization)
  Sender: FDA-Public Use
  Company Number: NVSC2021IE035371

PATIENT
  Age: 65 Year
  Sex: Female
  Weight: 55 kg

DRUGS (2)
  1. COSENTYX [Suspect]
     Active Substance: SECUKINUMAB
     Indication: PSORIATIC ARTHROPATHY
     Dosage: 300 MG, BIW (300MGS EVERY FORTNIGHT)
     Route: 058
     Dates: start: 20200601, end: 20200917
  2. EZETIMIBE (G) [Concomitant]
     Active Substance: EZETIMIBE
     Indication: HYPERCHOLESTEROLAEMIA
     Dosage: UNK
     Route: 065
     Dates: start: 20181001

REACTIONS (3)
  - Streptococcal bacteraemia [Recovered/Resolved]
  - Liver abscess [Recovered/Resolved]
  - Streptococcal abscess [Recovered/Resolved]

NARRATIVE: CASE EVENT DATE: 20200917
